FAERS Safety Report 4455627-8 (Version None)
Quarter: 2004Q3

REPORT INFORMATION
  Report Type: 
  Country: None (occurrence: None)
  Receive Date: 20040917
  Receipt Date: 20040903
  Transmission Date: 20050211
  Serious: Yes (Hospitalization)
  Sender: FDA-Public Use
  Company Number: 04P-028-0272719-00

PATIENT
  Age: 52 Year
  Sex: Female

DRUGS (16)
  1. EPIVAL TABLETS (DEPAKOTE) (DIVALPROEX SODIUM) [Suspect]
     Indication: DEPRESSION
     Dosage: SEE IMAGE
     Route: 048
     Dates: start: 20040217, end: 20040821
  2. EPIVAL TABLETS (DEPAKOTE) (DIVALPROEX SODIUM) [Suspect]
     Indication: DEPRESSION
     Dosage: SEE IMAGE
     Route: 048
     Dates: start: 20040217, end: 20040821
  3. NORVIR [Suspect]
     Indication: HIV INFECTION
     Dosage: SEE IMAGE
     Route: 048
     Dates: start: 20020626, end: 20021211
  4. NORVIR [Suspect]
     Indication: HIV INFECTION
     Dosage: SEE IMAGE
     Route: 048
     Dates: start: 20021211, end: 20040821
  5. TIPRANAVIR [Concomitant]
     Indication: HIV INFECTION
     Dosage: 500 MG, 1 IN 1 D, PER ORAL
     Route: 048
     Dates: start: 20020626, end: 20040821
  6. PROCYCLIDINE HYDROCHLORIDE 2MG TAB [Suspect]
     Indication: MUSCULOSKELETAL STIFFNESS
     Dosage: 2.5 MG , 1 IN 1 D, PER ORAL
     Route: 048
     Dates: start: 20040322
  7. PROCYCLIDINE HYDROCHLORIDE 2MG TAB [Suspect]
     Indication: PROPHYLAXIS
     Dosage: 2.5 MG , 1 IN 1 D, PER ORAL
     Route: 048
     Dates: start: 20040322
  8. LAMIVUDINE [Concomitant]
  9. ABACAVIR [Concomitant]
  10. PARACETAMOL [Concomitant]
  11. ATOVAQUONE [Concomitant]
  12. CALCIUM CARBONATE [Concomitant]
  13. MAGIC PROPHYLAXIS [Concomitant]
  14. MAGIC MOUTHWASH [Concomitant]
  15. NYSTATIN [Concomitant]
  16. OLANZAPINE [Concomitant]

REACTIONS (10)
  - ALANINE AMINOTRANSFERASE INCREASED [None]
  - ASPARTATE AMINOTRANSFERASE INCREASED [None]
  - BLOOD ALKALINE PHOSPHATASE INCREASED [None]
  - BLOOD BILIRUBIN INCREASED [None]
  - GAMMA-GLUTAMYLTRANSFERASE INCREASED [None]
  - HYPOMANIA [None]
  - NAUSEA [None]
  - PSYCHOTIC DISORDER [None]
  - SCHIZOPHRENIA [None]
  - VOMITING [None]
